FAERS Safety Report 6667319-5 (Version None)
Quarter: 2010Q2

REPORT INFORMATION
  Report Type: 
  Country: None (occurrence: None)
  Receive Date: 20100401
  Receipt Date: 20100401
  Transmission Date: 20101027
  Serious: No
  Sender: FDA-Public Use
  Company Number: None

PATIENT
  Age: 46 Year
  Sex: Female

DRUGS (1)
  1. TOPAMAX [Suspect]
     Dosage: TWICE A DAY
     Route: 048
     Dates: start: 20080301, end: 20081201

REACTIONS (2)
  - IMPAIRED WORK ABILITY [None]
  - UNEVALUABLE EVENT [None]
